FAERS Safety Report 7463741-8 (Version None)
Quarter: 2011Q2

REPORT INFORMATION
  Report Type: 
  Country: None (occurrence: None)
  Receive Date: 20110506
  Receipt Date: 20110504
  Transmission Date: 20111010
  Serious: Yes (Hospitalization)
  Sender: FDA-Public Use
  Company Number: AU-AMGEN-AUSCT2011018360

PATIENT
  Age: 64 Year
  Sex: Male

DRUGS (17)
  1. ARTIFICIAL TEARS [Concomitant]
     Dosage: UNK UNK, PRN
     Route: 047
     Dates: start: 20100623
  2. COLOXYL [Concomitant]
     Dosage: UNK UNK, PRN
     Route: 048
     Dates: start: 20100623
  3. DOCETAXEL [Concomitant]
  4. ENOXAPARIN SODIUM [Concomitant]
     Dosage: 8 MG, QD
     Route: 058
     Dates: start: 20100825
  5. VECTIBIX [Suspect]
     Indication: GASTROOESOPHAGEAL CANCER
  6. CAPECITABINE [Concomitant]
  7. PRILOSEC [Concomitant]
     Dosage: 40 MG, QD
     Route: 048
  8. RULIDE [Concomitant]
     Dosage: 300 MG, QD
     Route: 048
     Dates: start: 20101002, end: 20101001
  9. AUGMENTIN '125' [Concomitant]
     Dosage: UNK UNK, BID
     Route: 048
     Dates: start: 20101002, end: 20101001
  10. TENOPT [Concomitant]
     Dosage: UNK UNK, QD
     Route: 047
     Dates: start: 20101002
  11. DOXYCYCLINE [Concomitant]
     Dosage: UNK UNK, QD
     Route: 048
     Dates: start: 20100916
  12. CISPLATIN [Concomitant]
  13. HYDROCORTISONE [Concomitant]
     Dosage: UNK UNK, PRN
     Route: 061
     Dates: start: 20100605
  14. ENSURE PLUS [Concomitant]
     Dosage: 200 ML, TID
     Route: 048
     Dates: start: 20101001
  15. XALATAN [Concomitant]
     Dosage: UNK UNK, QD
     Route: 061
     Dates: start: 20110317
  16. SODIUM BICARBONATE [Concomitant]
     Dosage: UNK UNK, PRN
     Route: 048
     Dates: start: 20100427
  17. MAGMIN [Concomitant]
     Dosage: UNK UNK, TID
     Route: 048
     Dates: start: 20100916

REACTIONS (2)
  - HYPOMAGNESAEMIA [None]
  - ATRIAL FIBRILLATION [None]
